FAERS Safety Report 4462209-0 (Version None)
Quarter: 2004Q3

REPORT INFORMATION
  Report Type: 
  Country: None (occurrence: None)
  Receive Date: 20040929
  Receipt Date: 20040907
  Transmission Date: 20050211
  Serious: Yes (Hospitalization)
  Sender: FDA-Public Use
  Company Number: DE-ROCHE-379760

PATIENT
  Sex: Male

DRUGS (4)
  1. ROFERON-A [Suspect]
     Dosage: DOSAGE REGIMEN: 12 MILLIONIU PER WEEK.
     Route: 065
  2. PSORALEN [Concomitant]
  3. INSULIN [Concomitant]
  4. DIGITALIS [Concomitant]

REACTIONS (1)
  - ERYTHEMA MULTIFORME [None]
